FAERS Safety Report 19212736 (Version 1)
Quarter: 2021Q2

REPORT INFORMATION
  Report Type: Spontaneous
  Country: US (occurrence: US)
  Receive Date: 20210504
  Receipt Date: 20210504
  Transmission Date: 20210717
  Serious: No
  Sender: FDA-Public Use
  Company Number: US-ASTRAZENECA-2021A331769

PATIENT
  Sex: Female

DRUGS (1)
  1. SYMBICORT [Suspect]
     Active Substance: BUDESONIDE\FORMOTEROL FUMARATE DIHYDRATE
     Dosage: DOSE UNKNOWN; FRENQUENCY UNKNOWN UNKNOWN
     Route: 055

REACTIONS (5)
  - Dyspnoea [Unknown]
  - Agitation [Unknown]
  - Restlessness [Unknown]
  - Therapeutic product effect decreased [Unknown]
  - Nausea [Unknown]
